FAERS Safety Report 18157561 (Version 1)
Quarter: 2020Q3

REPORT INFORMATION
  Report Type: Spontaneous
  Country: US (occurrence: US)
  Receive Date: 20200817
  Receipt Date: 20200817
  Transmission Date: 20201103
  Serious: Yes (Death)
  Sender: FDA-Public Use
  Company Number: None

PATIENT
  Age: 32 Year
  Sex: Female

DRUGS (1)
  1. BLUMEN ADVANCED INSTANT HAND SANITIZER CLEAR [Suspect]
     Active Substance: ALCOHOL
     Indication: COVID-19 PROPHYLAXIS

REACTIONS (2)
  - Blood methanol [None]
  - Toxicologic test abnormal [None]
